FAERS Safety Report 20476626 (Version 1)
Quarter: 2022Q1

REPORT INFORMATION
  Report Type: Spontaneous
  Country: US (occurrence: US)
  Receive Date: 20220215
  Receipt Date: 20220215
  Transmission Date: 20220423
  Serious: No
  Sender: FDA-Public Use
  Company Number: US-PFIZER INC-202200248795

PATIENT
  Age: 50 Year
  Sex: Female
  Weight: 68.04 kg

DRUGS (3)
  1. LYRICA [Suspect]
     Active Substance: PREGABALIN
     Indication: Neuropathy peripheral
     Dosage: 75 MG
     Dates: start: 2022, end: 2022
  2. LYRICA [Suspect]
     Active Substance: PREGABALIN
     Indication: Nerve compression
     Dosage: ONCE A DAY, AFTER A WEEK TO TWICE A DAY
     Dates: start: 2022, end: 2022
  3. LYRICA [Suspect]
     Active Substance: PREGABALIN
     Dosage: ONCE A DAY, AFTER A WEEK TO TWICE A DAY
     Dates: start: 2022

REACTIONS (6)
  - Sensation of foreign body [Not Recovered/Not Resolved]
  - Hypersomnia [Unknown]
  - Dizziness [Not Recovered/Not Resolved]
  - Swelling [Unknown]
  - Hangover [Unknown]
  - Illness [Unknown]

NARRATIVE: CASE EVENT DATE: 20220101
